FAERS Safety Report 5370107-3 (Version None)
Quarter: 2007Q2

REPORT INFORMATION
  Report Type: 
  Country: None (occurrence: None)
  Receive Date: 20070614
  Receipt Date: 20070413
  Transmission Date: 20071010
  Serious: Yes (Other)
  Sender: FDA-Public Use
  Company Number: EDI-009367

PATIENT
  Age: 35 Year
  Sex: Female
  Weight: 81.82 kg

DRUGS (3)
  1. MULTIHANCE [Suspect]
     Indication: NUCLEAR MAGNETIC RESONANCE IMAGING BRAIN
     Dosage: 10 ML ONCE IV
     Route: 042
     Dates: start: 20070413, end: 20070413
  2. TUMS [Concomitant]
  3. TYLENOL (CAPLET) [Concomitant]

REACTIONS (1)
  - ANAPHYLACTIC SHOCK [None]
